FAERS Safety Report 5648616-9 (Version None)
Quarter: 2008Q1

REPORT INFORMATION
  Report Type: 
  Country: None (occurrence: None)
  Receive Date: 20080304
  Receipt Date: 20080221
  Transmission Date: 20080703
  Serious: Yes (Death)
  Sender: FDA-Public Use
  Company Number: CH-AMGEN-US267065

PATIENT
  Age: 59 Year
  Sex: Male

DRUGS (7)
  1. ENBREL [Suspect]
     Indication: PSORIATIC ARTHROPATHY
     Route: 065
     Dates: start: 20050901
  2. ENBREL [Suspect]
     Dates: end: 20080101
  3. FOLIC ACID [Concomitant]
     Route: 065
  4. PROPRANOLOL [Concomitant]
     Route: 065
  5. NEXIUM [Concomitant]
     Route: 065
  6. TOREM [Concomitant]
     Route: 065
  7. ALDACTONE [Concomitant]
     Route: 065

REACTIONS (1)
  - DEATH [None]
